FAERS Safety Report 18496064 (Version 1)
Quarter: 2020Q4

REPORT INFORMATION
  Report Type: Spontaneous
  Country: CO (occurrence: CO)
  Receive Date: 20201112
  Receipt Date: 20201112
  Transmission Date: 20210114
  Serious: Yes (Other)
  Sender: FDA-Public Use
  Company Number: CO-AMGEN-COLNI2020148426

PATIENT
  Age: 53 Year
  Sex: Female
  Weight: 85 kg

DRUGS (9)
  1. DEXAMETHASONE PHOSPHATE [Concomitant]
     Active Substance: DEXAMETHASONE PHOSPHATE
     Indication: GLIOBLASTOMA
     Dosage: 8 MG/2 ML IV, 8 MG PER BOLUS FOR 0 MIN
     Route: 040
     Dates: start: 20200908
  2. IRINOTECAN [Concomitant]
     Active Substance: IRINOTECAN
     Indication: GLIOBLASTOMA
     Dosage: 100MG / 5ML INJ SOL, 274.05 MG PER BOLUS FOR 0 MIN
     Route: 040
     Dates: start: 20200908
  3. LEVETIRACETAM. [Concomitant]
     Active Substance: LEVETIRACETAM
     Indication: SEIZURE
     Dosage: 1000 MILLIGRAM, Q8H FOR 30 DAYS
     Route: 048
     Dates: start: 20200704
  4. LOSARTAN. [Concomitant]
     Active Substance: LOSARTAN
     Indication: HYPERTENSION
     Dosage: 5 MILLIGRAM, QD
     Route: 048
     Dates: start: 20200930
  5. ONDANSETRON [Concomitant]
     Active Substance: ONDANSETRON
     Indication: GLIOBLASTOMA
     Dosage: 8 MG/4 ML, 16 MG PER BOLUS FOR 0 M
     Route: 040
     Dates: start: 20200908
  6. MVASI [Suspect]
     Active Substance: BEVACIZUMAB-AWWB
     Indication: GLIOBLASTOMA
     Dosage: 100 MG INJ POWDER, 860 MG PER BOLUS FOR 0 MINUTE
     Route: 040
     Dates: start: 20200908
  7. PREDNISOLONA [PREDNISOLONE] [Concomitant]
     Active Substance: PREDNISOLONE
     Dosage: 5 MILLIGRAM, QD, FOR 60 DAYS
  8. DEXAMETHASONE PHOSPHATE [Concomitant]
     Active Substance: DEXAMETHASONE PHOSPHATE
     Dosage: 4 MILLIGRAM PER MILLILITRE, QD, FOR 30 DAYS
     Route: 042
  9. ONDANSETRON [Concomitant]
     Active Substance: ONDANSETRON
     Dosage: 8 MILLIGRAM, Q8H, FOR 15 DAYS
     Route: 048

REACTIONS (3)
  - Kidney infection [Not Recovered/Not Resolved]
  - Decreased appetite [Not Recovered/Not Resolved]
  - Off label use [Not Recovered/Not Resolved]

NARRATIVE: CASE EVENT DATE: 20200908
